FAERS Safety Report 5691804-6 (Version None)
Quarter: 2008Q2

REPORT INFORMATION
  Report Type: 
  Country: None (occurrence: None)
  Receive Date: 20080402
  Receipt Date: 20080401
  Transmission Date: 20081010
  Serious: Yes (Other)
  Sender: FDA-Public Use
  Company Number: AU-BRISTOL-MYERS SQUIBB COMPANY-14089692

PATIENT
  Age: 36 Year
  Sex: Female

DRUGS (1)
  1. CARDIOLITE [Suspect]
     Indication: SCAN MYOCARDIAL PERFUSION

REACTIONS (4)
  - CHEST DISCOMFORT [None]
  - HEADACHE [None]
  - NAUSEA [None]
  - VOMITING [None]
